FAERS Safety Report 13206699 (Version 1)
Quarter: 2017Q1

REPORT INFORMATION
  Report Type: Spontaneous
  Country: US (occurrence: US)
  Receive Date: 20170209
  Receipt Date: 20170209
  Transmission Date: 20170428
  Serious: Yes (Other)
  Sender: FDA-Public Use
  Company Number: None

PATIENT
  Age: 77 Year
  Sex: Female
  Weight: 45.36 kg

DRUGS (10)
  1. LEVOFLOXACIN. [Suspect]
     Active Substance: LEVOFLOXACIN
     Indication: PYREXIA
     Dosage: 5 TABLETS 1 TIME DAILY TAKEN WITH LIQUID BY MOUTH
     Route: 048
     Dates: start: 20151215, end: 20151220
  2. LEVOFLOXACIN. [Suspect]
     Active Substance: LEVOFLOXACIN
     Indication: NASAL CONGESTION
     Dosage: 5 TABLETS 1 TIME DAILY TAKEN WITH LIQUID BY MOUTH
     Route: 048
     Dates: start: 20151215, end: 20151220
  3. CALCIUM + VIT. D [Concomitant]
  4. LEVOFLOXACIN. [Suspect]
     Active Substance: LEVOFLOXACIN
     Indication: COUGH
     Dosage: 5 TABLETS 1 TIME DAILY TAKEN WITH LIQUID BY MOUTH
     Route: 048
     Dates: start: 20151215, end: 20151220
  5. LEVOFLOXACIN. [Suspect]
     Active Substance: LEVOFLOXACIN
     Indication: PRODUCT USED FOR UNKNOWN INDICATION
     Dosage: 5 TABLETS 1 TIME DAILY TAKEN WITH LIQUID BY MOUTH
     Route: 048
     Dates: start: 20151215, end: 20151220
  6. MULTIVITAMIN WOMEN 50+ [Concomitant]
  7. LEVOFLOXACIN. [Suspect]
     Active Substance: LEVOFLOXACIN
     Indication: OROPHARYNGEAL PAIN
     Dosage: 5 TABLETS 1 TIME DAILY TAKEN WITH LIQUID BY MOUTH
     Route: 048
     Dates: start: 20151215, end: 20151220
  8. ARMOUR THYROID [Concomitant]
     Active Substance: THYROID, PORCINE
  9. VITAMIN D3 [Concomitant]
     Active Substance: CHOLECALCIFEROL
  10. VITAMIN B12 [Concomitant]
     Active Substance: CYANOCOBALAMIN

REACTIONS (5)
  - Dysphagia [None]
  - Eating disorder [None]
  - Fear [None]
  - Emotional disorder [None]
  - Insomnia [None]

NARRATIVE: CASE EVENT DATE: 20151215
